FAERS Safety Report 8829891 (Version 3)
Quarter: 2012Q4

REPORT INFORMATION
  Report Type: 
  Country: DE (occurrence: DE)
  Receive Date: 20121008
  Receipt Date: 20121123
  Transmission Date: 20130627
  Serious: Yes (Hospitalization)
  Sender: FDA-Public Use
  Company Number: PHHY2012DE088408

PATIENT
  Sex: Male

DRUGS (6)
  1. ACLASTA [Suspect]
     Dosage: 5 mg once
     Route: 042
     Dates: start: 20120711
  2. ANTIBIOTICS [Concomitant]
  3. FERRO SANOL COMP [Concomitant]
  4. PANTOZOL [Concomitant]
  5. ENALAPRIL [Concomitant]
  6. METOPROLOL [Concomitant]

REACTIONS (5)
  - Gastrointestinal angiodysplasia [Unknown]
  - Anaemia [Unknown]
  - Haemoglobin decreased [Unknown]
  - Dyspnoea exertional [Unknown]
  - Asthenia [Unknown]
